FAERS Safety Report 25721255 (Version 1)
Quarter: 2025Q3

REPORT INFORMATION
  Report Type: Spontaneous
  Country: US (occurrence: None)
  Receive Date: 20250822
  Receipt Date: 20250822
  Transmission Date: 20251021
  Serious: Yes (Hospitalization)
  Sender: FDA-CTU
  Company Number: None

PATIENT
  Age: 77 Year
  Sex: Female
  Weight: 78.5 kg

DRUGS (1)
  1. HYDROXYCHLOROQUINE [Suspect]
     Active Substance: HYDROXYCHLOROQUINE
     Indication: Giant cell arteritis
     Dosage: FREQUENCY : TWICE A DAY;?
     Route: 048
     Dates: start: 20250620, end: 20250724

REACTIONS (2)
  - Acute generalised exanthematous pustulosis [None]
  - Drug eruption [None]

NARRATIVE: CASE EVENT DATE: 20250729
